FAERS Safety Report 23424054 (Version 1)
Quarter: 2024Q1

REPORT INFORMATION
  Report Type: Spontaneous
  Country: GB (occurrence: GB)
  Receive Date: 20240120
  Receipt Date: 20240120
  Transmission Date: 20240410
  Serious: Yes (Other)
  Sender: FDA-Public Use
  Company Number: None

PATIENT
  Age: 59 Year

DRUGS (14)
  1. FREMANEZUMAB [Suspect]
     Active Substance: FREMANEZUMAB
     Indication: Migraine
     Route: 058
  2. BETAHISTINE [Concomitant]
     Active Substance: BETAHISTINE
     Dosage: TIME INTERVAL: 0.33333333 DAYS
  3. HYALURONATE SODIUM [Concomitant]
     Active Substance: HYALURONATE SODIUM
     Dosage: 0.2% EYE DROPS PF
  4. LORAZEPAM [Concomitant]
     Active Substance: LORAZEPAM
     Dosage: 1MG TABS - 1 PRN (MAX 3MG IN 24 HRS)
  5. SERTRALINE [Concomitant]
     Active Substance: SERTRALINE HYDROCHLORIDE
  6. COCODAMOL [Concomitant]
     Active Substance: ACETAMINOPHEN\CODEINE PHOSPHATE
     Dosage: 30MG/500MG TABS - 2 QDS PRN
  7. STRIVIT-D3 [Concomitant]
  8. ASPIRIN [Concomitant]
     Active Substance: ASPIRIN
  9. GLYCOPYRRONIUM\INDACATEROL [Concomitant]
     Active Substance: GLYCOPYRRONIUM\INDACATEROL
     Dosage: 85MICROGRAM/43MICROGRAM WITH DEVICE- 1 OD - SWITCH TO ANORO
  10. ATORVASTATIN [Concomitant]
     Active Substance: ATORVASTATIN
  11. OMEPRAZOLE [Concomitant]
     Active Substance: OMEPRAZOLE
  12. RISPERIDONE [Concomitant]
     Active Substance: RISPERIDONE
     Dosage: 1MG TABS - 1 OM + 2 ON
  13. AMLODIPINE [Concomitant]
     Active Substance: AMLODIPINE BESYLATE
  14. CHLORPHENIRAMINE MALEATE [Concomitant]
     Active Substance: CHLORPHENIRAMINE MALEATE
     Dosage: 1 QDS PRN

REACTIONS (2)
  - Diarrhoea [Unknown]
  - Lower respiratory tract infection [Unknown]
